FAERS Safety Report 14536383 (Version 2)
Quarter: 2018Q1

REPORT INFORMATION
  Report Type: Spontaneous
  Country: CN (occurrence: CN)
  Receive Date: 20180215
  Receipt Date: 20180302
  Transmission Date: 20180509
  Serious: Yes (Hospitalization, Other)
  Sender: FDA-Public Use
  Company Number: CN-ASTRAZENECA-2018SE19817

PATIENT
  Age: 6 Month
  Sex: Male

DRUGS (9)
  1. SODIUM CHLORIDE. [Concomitant]
     Active Substance: SODIUM CHLORIDE
     Dosage: 100.0ML UNKNOWN
  2. BROMHEXIN [Concomitant]
     Active Substance: BROMHEXINE
  3. METHYLPREDNISOLONE SODIUM SUCCINATE. [Concomitant]
     Active Substance: METHYLPREDNISOLONE SODIUM SUCCINATE
     Route: 041
  4. CEFTRIAXONE SODIUM. [Concomitant]
     Active Substance: CEFTRIAXONE SODIUM
     Dosage: 0.25 G 8 UNKNOWN
  5. PULMICORT RESPULES [Suspect]
     Active Substance: BUDESONIDE
     Dosage: 1MG:2ML 5Z
     Route: 055
  6. BRICANYL [Suspect]
     Active Substance: TERBUTALINE SULFATE
     Route: 065
  7. OSELTAMIVIR PHOSPHATE. [Concomitant]
     Active Substance: OSELTAMIVIR PHOSPHATE
     Dosage: 15MG 10 PACKETS
  8. CEFTRIAXONE SODIUM. [Concomitant]
     Active Substance: CEFTRIAXONE SODIUM
     Dosage: 1.0G UNKNOWN
  9. GLUCOSE [Concomitant]
     Active Substance: DEXTROSE
     Dosage: 100.0ML UNKNOWN

REACTIONS (3)
  - Diarrhoea [Unknown]
  - Faeces discoloured [Unknown]
  - Bronchitis [Unknown]
